FAERS Safety Report 10697226 (Version 1)
Quarter: 2015Q1

REPORT INFORMATION
  Report Type: Spontaneous
  Country: US (occurrence: None)
  Receive Date: 20150107
  Receipt Date: 20150107
  Transmission Date: 20150721
  Serious: Yes (Other)
  Sender: FDA-Public Use
  Company Number: None

PATIENT
  Age: 64 Year
  Sex: Female
  Weight: 68.49 kg

DRUGS (1)
  1. LEVOFLOXACIN 750 [Suspect]
     Active Substance: LEVOFLOXACIN
     Indication: PNEUMONIA BACTERIAL
     Dosage: 5 TABLETS
     Route: 048
     Dates: start: 20131009, end: 20131010

REACTIONS (9)
  - Ligament sprain [None]
  - Foot fracture [None]
  - Gait disturbance [None]
  - Tendon disorder [None]
  - Muscle tightness [None]
  - Tendon pain [None]
  - Poor quality sleep [None]
  - Fall [None]
  - Stress fracture [None]

NARRATIVE: CASE EVENT DATE: 20150103
